FAERS Safety Report 6372609-X (Version None)
Quarter: 2009Q3

REPORT INFORMATION
  Report Type: 
  Country: None (occurrence: None)
  Receive Date: 20090922
  Receipt Date: 20090922
  Transmission Date: 20100115
  Serious: Yes (Life-Threatening, Hospitalization)
  Sender: FDA-Public Use
  Company Number: None

PATIENT
  Age: 14 Year
  Sex: Female
  Weight: 66.9056 kg

DRUGS (1)
  1. LEVETIRACETAM [Suspect]
     Dosage: 500 MG 2 PO BID
     Route: 048
     Dates: start: 20090428

REACTIONS (4)
  - CONDITION AGGRAVATED [None]
  - CONVULSION [None]
  - EDUCATIONAL PROBLEM [None]
  - PRODUCT SUBSTITUTION ISSUE [None]
